FAERS Safety Report 7627774-0 (Version None)
Quarter: 2011Q3

REPORT INFORMATION
  Report Type: 
  Country: None (occurrence: None)
  Receive Date: 20110721
  Receipt Date: 20110711
  Transmission Date: 20111222
  Serious: Yes (Other)
  Sender: FDA-Public Use
  Company Number: PHEH2010US02523

PATIENT
  Sex: Female

DRUGS (1)
  1. AREDIA [Suspect]
     Dosage: UNK
     Dates: end: 20010221

REACTIONS (16)
  - THROMBOSIS [None]
  - FACET JOINT SYNDROME [None]
  - SCOLIOSIS [None]
  - HYPERSENSITIVITY [None]
  - DYSPNOEA [None]
  - STRESS URINARY INCONTINENCE [None]
  - LUMBAR SPINAL STENOSIS [None]
  - HYPERLIPIDAEMIA [None]
  - DRUG HYPERSENSITIVITY [None]
  - ENDOMETRIAL HYPERPLASIA [None]
  - ATELECTASIS [None]
  - DYSMENORRHOEA [None]
  - EAR PAIN [None]
  - ENDOMETRIAL HYPERTROPHY [None]
  - THROMBOPHLEBITIS SUPERFICIAL [None]
  - CHEST DISCOMFORT [None]
